FAERS Safety Report 17975462 (Version 3)
Quarter: 2020Q3

REPORT INFORMATION
  Report Type: Report from Study
  Country: CA (occurrence: CA)
  Receive Date: 20200702
  Receipt Date: 20200831
  Transmission Date: 20201103
  Serious: Yes (Hospitalization)
  Sender: FDA-Public Use
  Company Number: CA-JNJFOC-20200417502

PATIENT
  Age: 30 Year
  Sex: Female
  Weight: 59.6 kg

DRUGS (2)
  1. REMICADE [Suspect]
     Active Substance: INFLIXIMAB
     Route: 042
     Dates: start: 20200521
  2. REMICADE [Suspect]
     Active Substance: INFLIXIMAB
     Indication: CROHN^S DISEASE
     Route: 042
     Dates: start: 20110725, end: 20200520

REACTIONS (8)
  - Sepsis [Not Recovered/Not Resolved]
  - Dyspnoea [Unknown]
  - Cough [Unknown]
  - Renal failure [Not Recovered/Not Resolved]
  - Pain [Unknown]
  - Malnutrition [Not Recovered/Not Resolved]
  - Therapeutic response decreased [Unknown]
  - Catheter culture positive [Unknown]

NARRATIVE: CASE EVENT DATE: 20200410
